FAERS Safety Report 5475639-5 (Version None)
Quarter: 2007Q4

REPORT INFORMATION
  Report Type: 
  Country: None (occurrence: None)
  Receive Date: 20071003
  Receipt Date: 20070924
  Transmission Date: 20080405
  Serious: Yes (Hospitalization)
  Sender: FDA-Public Use
  Company Number: SE-AMGEN-UK235528

PATIENT
  Age: 77 Year
  Sex: Female

DRUGS (9)
  1. NEUPOGEN [Suspect]
     Indication: AGRANULOCYTOSIS
     Route: 058
     Dates: start: 20070506, end: 20070512
  2. FLUCONAZOLE [Concomitant]
  3. ACETAMINOPHEN [Concomitant]
  4. DELTISON [Concomitant]
  5. TAVEGYL [Concomitant]
  6. CYCLOPHOSPHAMIDE [Concomitant]
  7. ONCOVIN [Concomitant]
  8. ZOFRAN [Concomitant]
  9. RITUXAN [Concomitant]

REACTIONS (1)
  - BACK PAIN [None]
